FAERS Safety Report 9938197 (Version 2)
Quarter: 2014Q2

REPORT INFORMATION
  Report Type: Report from Study
  Country: US (occurrence: US)
  Receive Date: 20140303
  Receipt Date: 20140409
  Transmission Date: 20141212
  Serious: Yes (Other)
  Sender: FDA-Public Use
  Company Number: US-ROCHE-1329746

PATIENT
  Age: 41 Year
  Sex: Male

DRUGS (15)
  1. LUCENTIS [Suspect]
     Indication: DIABETIC RETINAL OEDEMA
     Dosage: FOR 3 MONTHS THEN QUARTERLY
     Route: 050
  2. LUCENTIS [Suspect]
     Indication: DIABETIC RETINOPATHY
     Dosage: FOR 3 MONTHS THEN QUARTERLY
     Route: 050
  3. LUCENTIS [Suspect]
     Route: 050
     Dates: start: 20110928
  4. CLONIDINE [Concomitant]
  5. AMLODIPINE [Concomitant]
  6. ATROPINE [Concomitant]
     Dosage: OD
     Route: 065
  7. NIFEDIPINE [Concomitant]
  8. SUCRALFATE [Concomitant]
  9. NEPHRO-VITE [Concomitant]
  10. TRAVATAN [Concomitant]
     Dosage: QHS OD
     Route: 065
  11. LANTUS [Concomitant]
  12. NOVOLIN [Concomitant]
  13. ZYMAR [Concomitant]
     Dosage: 3 DAYS PRIOR TO NEXT VISIT OS
     Route: 065
  14. TIMOLOL [Concomitant]
     Dosage: OD
     Route: 065
  15. TOBRAMYCIN [Concomitant]
     Dosage: OS
     Route: 065

REACTIONS (19)
  - Dialysis [Unknown]
  - Blindness [Unknown]
  - Vision blurred [Unknown]
  - Eye pain [Unknown]
  - Visual acuity tests abnormal [Unknown]
  - Photopsia [Unknown]
  - Vitreous floaters [Unknown]
  - Retinal exudates [Unknown]
  - Glaucoma [Unknown]
  - Visual acuity reduced [Unknown]
  - Macular degeneration [Unknown]
  - Retinal oedema [Unknown]
  - Macular degeneration [Unknown]
  - Iris neovascularisation [Unknown]
  - Vitreous adhesions [Unknown]
  - Retinal laser coagulation [Unknown]
  - Metamorphopsia [Unknown]
  - Cataract nuclear [Unknown]
  - Atrophy [Unknown]
